FAERS Safety Report 11336857 (Version 3)
Quarter: 2015Q3

REPORT INFORMATION
  Report Type: Other
  Country: US (occurrence: US)
  Receive Date: 20150804
  Receipt Date: 20150826
  Transmission Date: 20151125
  Serious: Yes (Hospitalization, Other)
  Sender: FDA-Public Use
  Company Number: US-SHIRE-US201509618

PATIENT
  Age: 12 Year
  Sex: Male
  Weight: 43.89 kg

DRUGS (6)
  1. ELAPRASE [Suspect]
     Active Substance: IDURSULFASE
     Indication: MUCOPOLYSACCHARIDOSIS II
     Dosage: 22 MG, 1X/WEEK
     Route: 041
     Dates: start: 20110201
  2. ELAPRASE [Suspect]
     Active Substance: IDURSULFASE
     Dosage: 18 MG, UNKNOWN
     Route: 041
  3. ELAPRASE [Suspect]
     Active Substance: IDURSULFASE
     Dosage: 24 MG (4 VIALS), 1X/WEEK
     Route: 041
     Dates: start: 20070125
  4. KEPPRA [Concomitant]
     Active Substance: LEVETIRACETAM
     Indication: PRODUCT USED FOR UNKNOWN INDICATION
     Dosage: 2.5 ML, 2X/DAY:BID
     Route: 065
  5. BACLOFEN. [Concomitant]
     Active Substance: BACLOFEN
     Indication: PRODUCT USED FOR UNKNOWN INDICATION
     Dosage: 1 UNK, 3X/DAY:TID
     Route: 065
  6. MIRALAX [Concomitant]
     Active Substance: POLYETHYLENE GLYCOL 3350
     Indication: PRODUCT USED FOR UNKNOWN INDICATION
     Dosage: 1 DF, 1X/DAY:QD
     Route: 065

REACTIONS (7)
  - Dyspnoea [Recovered/Resolved]
  - Urinary incontinence [Unknown]
  - Anaphylactic reaction [Recovered/Resolved]
  - Swelling face [Recovered/Resolved with Sequelae]
  - Tremor [Unknown]
  - Infusion related reaction [Unknown]
  - Faecal incontinence [Unknown]

NARRATIVE: CASE EVENT DATE: 20150730
